FAERS Safety Report 5041286-2 (Version None)
Quarter: 2006Q2

REPORT INFORMATION
  Report Type: 
  Country: None (occurrence: None)
  Receive Date: 20060601
  Receipt Date: 20060328
  Transmission Date: 20061013
  Serious: No
  Sender: FDA-Public Use
  Company Number: 2006PV011072

PATIENT
  Age: 71 Year
  Sex: Male
  Weight: 108.4097 kg

DRUGS (9)
  1. BYETTA [Suspect]
     Indication: DIABETES MELLITUS NON-INSULIN-DEPENDENT
     Dosage: 5 MCG;BID;SC
     Route: 058
     Dates: start: 20060210
  2. GLYBURIDE [Concomitant]
  3. GLUCOPHAGE [Concomitant]
  4. INSULIN R AND NPH [Concomitant]
  5. PRIMROSE [Concomitant]
  6. ALPHA LIPOIC ACID [Concomitant]
  7. VITAMIN B-12 [Concomitant]
  8. MAGNESIUM [Concomitant]
  9. NEURONTIN [Concomitant]

REACTIONS (3)
  - BLOOD GLUCOSE INCREASED [None]
  - INJECTION SITE BRUISING [None]
  - WEIGHT DECREASED [None]
